FAERS Safety Report 6471445-3 (Version None)
Quarter: 2009Q4

REPORT INFORMATION
  Report Type: 
  Country: None (occurrence: None)
  Receive Date: 20091201
  Receipt Date: 20091117
  Transmission Date: 20100525
  Serious: Yes (Other)
  Sender: FDA-Public Use
  Company Number: 1022556-2009-00243

PATIENT
  Sex: Female

DRUGS (1)
  1. DEXATRIM [Suspect]
     Indication: MEDICAL DIET

REACTIONS (1)
  - HAEMORRHAGIC STROKE [None]
